FAERS Safety Report 9747688 (Version 1)
Quarter: 2013Q4

REPORT INFORMATION
  Report Type: Spontaneous
  Country: US (occurrence: None)
  Receive Date: 20131211
  Receipt Date: 20131211
  Transmission Date: 20140711
  Serious: Yes (Other)
  Sender: FDA-Public Use
  Company Number: None

PATIENT
  Age: 50 Day
  Sex: Female

DRUGS (1)
  1. ALL WHITE 22% CARBAMIDE PEROXIDE [Suspect]
     Indication: DENTAL COSMETIC PROCEDURE
     Dosage: SYRINGE PART USED ONCE TEETH
     Dates: start: 20131115, end: 20131115

REACTIONS (2)
  - Application site discolouration [None]
  - Product quality issue [None]
